FAERS Safety Report 9413773 (Version 2)
Quarter: 2013Q3

REPORT INFORMATION
  Report Type: Spontaneous
  Country: US (occurrence: None)
  Receive Date: 20130705
  Receipt Date: 20130724
  Transmission Date: 20140515
  Serious: Yes (Hospitalization)
  Sender: FDA-Public Use
  Company Number: 2013-US-000015

PATIENT
  Age: 35 Year
  Sex: Female

DRUGS (4)
  1. DORYX [Suspect]
     Indication: ACNE CYSTIC
     Route: 048
     Dates: start: 20120912, end: 20130327
  2. CLINDAMYCIN (CLINDAMYCIN) [Concomitant]
  3. MITOGENIC MULTIVITAMIN (MULTI (VITAMINS NOS)) [Concomitant]
  4. TAZORAC (TAZAROTENE) [Concomitant]

REACTIONS (18)
  - Hypotension [None]
  - Platelet count decreased [None]
  - Blood iron decreased [None]
  - Weight decreased [None]
  - Chromaturia [None]
  - Headache [None]
  - Urinary retention [None]
  - Dizziness [None]
  - Decreased appetite [None]
  - Arthralgia [None]
  - Chest pain [None]
  - Nausea [None]
  - Night sweats [None]
  - Pyrexia [None]
  - Syncope [None]
  - Vomiting [None]
  - Oesophagitis [None]
  - Alopecia [None]
